FAERS Safety Report 7208998-3 (Version None)
Quarter: 2011Q1

REPORT INFORMATION
  Report Type: 
  Country: None (occurrence: None)
  Receive Date: 20110104
  Receipt Date: 20101230
  Transmission Date: 20110831
  Serious: Yes (Other)
  Sender: FDA-Public Use
  Company Number: GXKR2010DE14277

PATIENT
  Age: 44 Year
  Sex: Female

DRUGS (1)
  1. TRIAMHEXAL [Suspect]
     Dosage: UNK

REACTIONS (8)
  - TACHYCARDIA [None]
  - CHILLS [None]
  - VISUAL IMPAIRMENT [None]
  - DEAFNESS [None]
  - BLOOD PRESSURE DECREASED [None]
  - ERYTHEMA [None]
  - SWELLING [None]
  - RASH [None]
